FAERS Safety Report 24693059 (Version 5)
Quarter: 2025Q1

REPORT INFORMATION
  Report Type: Report from Study
  Country: BR (occurrence: BR)
  Receive Date: 20241203
  Receipt Date: 20250225
  Transmission Date: 20250409
  Serious: Yes (Hospitalization, Other)
  Sender: GILEAD
  Company Number: BR-GILEAD-2024-0695544

PATIENT
  Age: 41 Year
  Sex: Male
  Weight: 73 kg

DRUGS (6)
  1. AXICABTAGENE CILOLEUCEL [Suspect]
     Active Substance: AXICABTAGENE CILOLEUCEL
     Indication: Diffuse large B-cell lymphoma
     Route: 042
     Dates: start: 20241121, end: 20241121
  2. AXICABTAGENE CILOLEUCEL [Suspect]
     Active Substance: AXICABTAGENE CILOLEUCEL
     Indication: Follicular lymphoma
  3. BACTRIM [Concomitant]
     Active Substance: SULFAMETHOXAZOLE\TRIMETHOPRIM
  4. ALLOPURINOL [Concomitant]
     Active Substance: ALLOPURINOL
  5. MAGNESIUM [Concomitant]
     Active Substance: MAGNESIUM
  6. CALCIUM [Concomitant]
     Active Substance: CALCIUM

REACTIONS (24)
  - Loss of consciousness [Recovered/Resolved]
  - Mental impairment [Unknown]
  - Somnolence [Unknown]
  - Hypoxia [Recovered/Resolved]
  - Cytokine release syndrome [Recovered/Resolved]
  - Heart rate increased [Unknown]
  - Lower respiratory tract infection bacterial [Recovering/Resolving]
  - Immunodeficiency [Recovering/Resolving]
  - Amnesia [Unknown]
  - Feeling abnormal [Unknown]
  - Oxygen saturation decreased [Recovered/Resolved]
  - Aphasia [Unknown]
  - Dysgraphia [Unknown]
  - Confusional state [Recovering/Resolving]
  - Taste disorder [Recovered/Resolved]
  - Injection site pain [Unknown]
  - Catheter placement [Recovered/Resolved]
  - Injection site pain [Unknown]
  - Sinusitis [Recovering/Resolving]
  - Injection site mass [Recovering/Resolving]
  - Injection site pruritus [Recovering/Resolving]
  - Injection site discolouration [Recovering/Resolving]
  - Platelet count decreased [Recovering/Resolving]
  - Weight decreased [Unknown]

NARRATIVE: CASE EVENT DATE: 20241101
